FAERS Safety Report 5514930-0 (Version None)
Quarter: 2007Q4

REPORT INFORMATION
  Report Type: 
  Country: None (occurrence: None)
  Receive Date: 20071113
  Receipt Date: 20061012
  Transmission Date: 20080405
  Serious: No
  Sender: FDA-Public Use
  Company Number: A0622992A

PATIENT
  Sex: Female

DRUGS (1)
  1. COREG [Suspect]
     Dosage: 12.5MG UNKNOWN
     Route: 048

REACTIONS (3)
  - CHEST PAIN [None]
  - DYSPNOEA [None]
  - PHARMACEUTICAL PRODUCT COMPLAINT [None]
